FAERS Safety Report 7406631-9 (Version None)
Quarter: 2011Q2

REPORT INFORMATION
  Report Type: 
  Country: None (occurrence: None)
  Receive Date: 20110411
  Receipt Date: 20110404
  Transmission Date: 20111010
  Serious: Yes (Death, Other)
  Sender: FDA-Public Use
  Company Number: US-BRISTOL-MYERS SQUIBB COMPANY-15652308

PATIENT
  Age: 6 Decade
  Sex: Female

DRUGS (3)
  1. METHOTREXATE [Concomitant]
     Dosage: 4-5TIMES
  2. PREDNISONE [Concomitant]
  3. ORENCIA [Suspect]

REACTIONS (3)
  - RESPIRATORY TRACT INFECTION [None]
  - DEATH [None]
  - THROMBOSIS [None]
